FAERS Safety Report 6735095-3 (Version None)
Quarter: 2010Q2

REPORT INFORMATION
  Report Type: 
  Country: None (occurrence: None)
  Receive Date: 20100518
  Receipt Date: 20100518
  Transmission Date: 20101027
  Serious: Yes (Other)
  Sender: FDA-Public Use
  Company Number: None

PATIENT
  Sex: Male

DRUGS (3)
  1. FENTANYL [Suspect]
     Indication: HEADACHE
     Dosage: 100MG 2 Q 98 50MG 1 Q 98
  2. FENTANYL [Suspect]
     Indication: PAIN
     Dosage: 100MG 2 Q 98 50MG 1 Q 98
  3. OXYCODONE [Concomitant]

REACTIONS (1)
  - PRODUCT ADHESION ISSUE [None]
